FAERS Safety Report 6189959-2 (Version None)
Quarter: 2009Q2

REPORT INFORMATION
  Report Type: 
  Country: None (occurrence: None)
  Receive Date: 20090514
  Receipt Date: 20090505
  Transmission Date: 20091009
  Serious: Yes (Other)
  Sender: FDA-Public Use
  Company Number: PHHY2009BR15809

PATIENT
  Sex: Female
  Weight: 55 kg

DRUGS (3)
  1. TEGRETOL [Suspect]
     Indication: EPILEPSY
     Dosage: 1 TABLET (200MG) IN MOR AND 1/2 TAB AT NIGHT
     Route: 048
  2. TEGRETOL [Suspect]
     Dosage: 400 MG, BID
     Route: 048
  3. GARDENAL [Concomitant]
     Indication: EPILEPSY
     Dosage: 100 MG, QD
     Route: 048

REACTIONS (4)
  - CAESAREAN SECTION [None]
  - CONVULSION [None]
  - DRUG EXPOSURE DURING PREGNANCY [None]
  - NORMAL NEWBORN [None]
